FAERS Safety Report 4609393-3 (Version None)
Quarter: 2005Q1

REPORT INFORMATION
  Report Type: 
  Country: None (occurrence: None)
  Receive Date: 20050314
  Receipt Date: 20050301
  Transmission Date: 20050727
  Serious: Yes (Hospitalization, Other)
  Sender: FDA-Public Use
  Company Number: 2005039337

PATIENT
  Sex: Female

DRUGS (5)
  1. AMLODIPINE [Suspect]
     Indication: HYPERTENSION
  2. PROPRANOLOL [Suspect]
     Indication: HYPERTENSION
  3. BI PREDONIUM (INDAPAMIDE, PERINDOPRIL ERBUMINE) [Concomitant]
  4. BROMAZEPAM (BROMAZEPAM) [Concomitant]
  5. POTASSIUM CHLORIDE [Concomitant]

REACTIONS (3)
  - ADRENAL ADENOMA [None]
  - BLOOD POTASSIUM DECREASED [None]
  - UNEVALUABLE EVENT [None]
